FAERS Safety Report 9163884 (Version 1)
Quarter: 2013Q1

REPORT INFORMATION
  Report Type: Spontaneous
  Country: DE (occurrence: DE)
  Receive Date: 20130314
  Receipt Date: 20130314
  Transmission Date: 20140127
  Serious: Yes (Other)
  Sender: FDA-Public Use
  Company Number: DE-ASTRAZENECA-2013SE16446

PATIENT
  Age: 35 Year
  Sex: Female
  Weight: 110 kg

DRUGS (5)
  1. ATACAND [Suspect]
     Indication: HYPERTENSION
     Route: 048
     Dates: end: 20111211
  2. METOPROLOL [Concomitant]
     Indication: HYPERTENSION
     Route: 048
  3. METOPROLOL [Concomitant]
     Indication: HYPERTENSION
     Route: 048
     Dates: end: 20120421
  4. FOLIO FORTE [Concomitant]
     Indication: PROPHYLAXIS OF NEURAL TUBE DEFECT
     Dosage: 0.8 MG DAILY 5-12 GESTATIONAL WEEK
     Route: 048
  5. CYTOTEC [Concomitant]
     Indication: LABOUR INDUCTION
     Route: 067
     Dates: start: 20120418, end: 20120419

REACTIONS (3)
  - Exposure during pregnancy [Unknown]
  - Vitamin D deficiency [Unknown]
  - Glucose tolerance impaired [Unknown]
